FAERS Safety Report 21220893 (Version 16)
Quarter: 2024Q1

REPORT INFORMATION
  Report Type: Report from Study
  Country: CA (occurrence: CA)
  Receive Date: 20220817
  Receipt Date: 20240226
  Transmission Date: 20240410
  Serious: Yes (Hospitalization, Other)
  Sender: FDA-Public Use
  Company Number: CA-UCBSA-2022046271

PATIENT
  Age: 53 Year
  Sex: Female

DRUGS (2)
  1. CERTOLIZUMAB PEGOL [Suspect]
     Active Substance: CERTOLIZUMAB PEGOL
     Indication: Rheumatoid arthritis
     Dosage: 400 MILLIGRAM, EV 2 WEEKS(QOW) X 3
     Route: 058
     Dates: start: 20210924
  2. CERTOLIZUMAB PEGOL [Suspect]
     Active Substance: CERTOLIZUMAB PEGOL
     Dosage: 200 MILLIGRAM, EV 2 WEEKS(QOW) (Q2WK)
     Route: 058

REACTIONS (16)
  - COVID-19 [Unknown]
  - Rheumatoid arthritis [Not Recovered/Not Resolved]
  - Fibroadenoma of breast [Unknown]
  - Nasopharyngitis [Recovering/Resolving]
  - Cough [Recovering/Resolving]
  - Muscle spasms [Recovering/Resolving]
  - Pulmonary pain [Recovered/Resolved]
  - Ligament sprain [Recovering/Resolving]
  - Laryngitis [Unknown]
  - Chest discomfort [Unknown]
  - Head discomfort [Unknown]
  - Ear disorder [Unknown]
  - Rhinorrhoea [Recovering/Resolving]
  - Erythema [Unknown]
  - Intentional dose omission [Unknown]
  - Syringe issue [Unknown]

NARRATIVE: CASE EVENT DATE: 20220701
